FAERS Safety Report 24655473 (Version 2)
Quarter: 2024Q4

REPORT INFORMATION
  Report Type: Report from Study
  Country: US (occurrence: US)
  Receive Date: 20241123
  Receipt Date: 20241220
  Transmission Date: 20250115
  Serious: Yes (Hospitalization)
  Sender: ABBVIE
  Company Number: US-ABBVIE-6011223

PATIENT
  Age: 67 Year
  Sex: Male

DRUGS (2)
  1. RINVOQ [Suspect]
     Active Substance: UPADACITINIB
     Indication: Rheumatoid arthritis
     Dosage: STRENGHT TEXT: 15 MG, LAST ADMIN DATE: 2024/07
     Route: 048
     Dates: start: 20240712
  2. RINVOQ [Suspect]
     Active Substance: UPADACITINIB
     Indication: Rheumatoid arthritis
     Route: 048
     Dates: start: 202407

REACTIONS (3)
  - Escherichia urinary tract infection [Recovered/Resolved]
  - Fall [Recovering/Resolving]
  - Sciatica [Recovering/Resolving]

NARRATIVE: CASE EVENT DATE: 20240901
